FAERS Safety Report 4477441-X (Version None)
Quarter: 2004Q4

REPORT INFORMATION
  Report Type: 
  Country: None (occurrence: None)
  Receive Date: 20041005
  Receipt Date: 20040920
  Transmission Date: 20050328
  Serious: Yes (Other)
  Sender: FDA-Public Use
  Company Number: 239408

PATIENT
  Sex: Female

DRUGS (1)
  1. NOVOSEVEN [Suspect]
     Indication: ILL-DEFINED DISORDER
     Dosage: 7.2 MG (360 KIU), QD

REACTIONS (1)
  - PULMONARY EMBOLISM [None]
